FAERS Safety Report 24322338 (Version 2)
Quarter: 2025Q4

REPORT INFORMATION
  Report Type: Report from Study
  Country: CO (occurrence: CO)
  Receive Date: 20240916
  Receipt Date: 20251202
  Transmission Date: 20260117
  Serious: Yes (Other)
  Sender: TAKEDA
  Company Number: CO-TAKEDA-2024TUS072624

PATIENT
  Age: 45 Year
  Sex: Male
  Weight: 64.998 kg

DRUGS (1)
  1. VEDOLIZUMAB [Suspect]
     Active Substance: VEDOLIZUMAB
     Indication: Colitis ulcerative
     Dosage: 300 MILLIGRAM, Q4WEEKS
     Dates: start: 20180817

REACTIONS (5)
  - Rectal haemorrhage [Unknown]
  - Diarrhoea [Unknown]
  - Weight increased [Unknown]
  - Abdominal pain [Unknown]
  - Gastroenteritis [Unknown]

NARRATIVE: CASE EVENT DATE: 20250620
